FAERS Safety Report 9979533 (Version 1)
Quarter: 2014Q1

REPORT INFORMATION
  Report Type: Report from Study
  Country: US (occurrence: US)
  Receive Date: 20140306
  Receipt Date: 20140306
  Transmission Date: 20141002
  Serious: No
  Sender: FDA-Public Use
  Company Number: US-ABBVIE-13P-163-1171100-00

PATIENT
  Age: 50 Year
  Sex: Female
  Weight: 86.26 kg

DRUGS (9)
  1. HUMIRA [Suspect]
     Indication: PSORIATIC ARTHROPATHY
     Dates: start: 20131031
  2. FOLIC ACID [Concomitant]
     Indication: VITAMIN SUPPLEMENTATION
  3. METHOTREXATE [Concomitant]
     Indication: ARTHRITIS
  4. LEVOTHYROXINE [Concomitant]
     Indication: HYPOTHYROIDISM
  5. CLONAZEPAM [Concomitant]
     Indication: ANXIETY
  6. CYCLOBENZAPRINE [Concomitant]
     Indication: BACK PAIN
  7. PREDNISONE ACETATE [Concomitant]
     Indication: EYE INFLAMMATION
  8. HYDROCODONE [Concomitant]
     Indication: ARTHRALGIA
  9. TRAMADOL [Concomitant]
     Indication: PAIN

REACTIONS (6)
  - Stomatitis [Not Recovered/Not Resolved]
  - Cough [Not Recovered/Not Resolved]
  - Muscle spasms [Not Recovered/Not Resolved]
  - Abdominal pain upper [Not Recovered/Not Resolved]
  - Influenza like illness [Not Recovered/Not Resolved]
  - Pyrexia [Not Recovered/Not Resolved]
